FAERS Safety Report 16780951 (Version 1)
Quarter: 2019Q3

REPORT INFORMATION
  Report Type: Report from Study
  Country: DE (occurrence: DE)
  Receive Date: 20190906
  Receipt Date: 20190906
  Transmission Date: 20191005
  Serious: Yes (Other)
  Sender: FDA-Public Use
  Company Number: DE-BAYER-2019-156932

PATIENT
  Age: 60 Year
  Sex: Female

DRUGS (1)
  1. BETAFERON [Suspect]
     Active Substance: INTERFERON BETA-1B
     Indication: MULTIPLE SCLEROSIS
     Dosage: 250 ?G, QOD
     Route: 058
     Dates: start: 20070501

REACTIONS (10)
  - Connective tissue disorder [Not Recovered/Not Resolved]
  - Injection site reaction [Recovering/Resolving]
  - Arrhythmia [None]
  - Pain [Not Recovered/Not Resolved]
  - Osteoarthritis [Unknown]
  - Musculoskeletal stiffness [None]
  - Injection site inflammation [None]
  - Injection site pain [None]
  - Hyperhidrosis [None]
  - Atrial fibrillation [None]
